FAERS Safety Report 15767037 (Version 1)
Quarter: 2018Q4

REPORT INFORMATION
  Report Type: Spontaneous
  Country: BR (occurrence: BR)
  Receive Date: 20181227
  Receipt Date: 20181227
  Transmission Date: 20190205
  Serious: Yes (Hospitalization, Other)
  Sender: FDA-Public Use
  Company Number: BR-PFIZER INC-2018525943

PATIENT
  Sex: Female

DRUGS (4)
  1. LORAX [Suspect]
     Active Substance: LORAZEPAM
     Dosage: 0.75 TABLET, 1X/DAY
  2. LORAX [Suspect]
     Active Substance: LORAZEPAM
     Dosage: 1 TABLET, 2X/DAY
  3. LORAX [Suspect]
     Active Substance: LORAZEPAM
     Dosage: 1 DF, 1X/DAY
  4. LORAX [Suspect]
     Active Substance: LORAZEPAM
     Dosage: 0.5 TABLET, 1X/DAY

REACTIONS (5)
  - Feeling abnormal [Unknown]
  - Anaemia [Unknown]
  - Intentional product misuse [Unknown]
  - Feeling of despair [Unknown]
  - Drug dependence [Unknown]
